FAERS Safety Report 20893371 (Version 1)
Quarter: 2022Q2

REPORT INFORMATION
  Report Type: Spontaneous
  Country: US (occurrence: US)
  Receive Date: 20220531
  Receipt Date: 20220531
  Transmission Date: 20220720
  Serious: No
  Sender: FDA-Public Use
  Company Number: US-STRIDES ARCOLAB LIMITED-2022SP003771

PATIENT
  Age: 69 Year
  Sex: Female

DRUGS (4)
  1. ACYCLOVIR [Suspect]
     Active Substance: ACYCLOVIR
     Indication: Neurotrophic keratopathy
     Dosage: UNK
     Route: 048
  2. CENEGERMIN-BKBJ [Concomitant]
     Active Substance: CENEGERMIN-BKBJ
     Indication: Neurotrophic keratopathy
     Dosage: 1 DROP, (DROP (1/12 MILLILITRE)), 6 TIMES DAILY FOR 8 WEEKS, TREATMENT CONTINUED AND COMPLETED
     Route: 061
  3. PREDNISOLONE ACETATE [Concomitant]
     Active Substance: PREDNISOLONE ACETATE
     Indication: Neurotrophic keratopathy
     Dosage: UNK, BID
     Route: 061
  4. POLYTRIM [Concomitant]
     Active Substance: POLYMYXIN B SULFATE\TRIMETHOPRIM SULFATE
     Indication: Neurotrophic keratopathy
     Dosage: UNK,OPHTHALMIC SOLUTION
     Route: 061

REACTIONS (1)
  - Off label use [Unknown]
